FAERS Safety Report 5745135-6 (Version None)
Quarter: 2008Q2

REPORT INFORMATION
  Report Type: 
  Country: None (occurrence: None)
  Receive Date: 20080521
  Receipt Date: 20080512
  Transmission Date: 20081010
  Serious: Yes (Hospitalization)
  Sender: FDA-Public Use
  Company Number: FR-AVENTIS-200712340FR

PATIENT
  Age: 42 Year
  Sex: Male
  Weight: 80 kg

DRUGS (4)
  1. KETEK [Suspect]
     Indication: SINUSITIS
     Route: 048
     Dates: start: 20070708, end: 20070711
  2. DERINOX                            /00886201/ [Suspect]
     Indication: SINUSITIS
     Route: 055
     Dates: start: 20070708, end: 20070711
  3. DIANTALVIC [Concomitant]
     Indication: SINUSITIS
  4. LOPRESSOR [Concomitant]

REACTIONS (3)
  - ABDOMINAL PAIN LOWER [None]
  - MYALGIA [None]
  - URINARY RETENTION [None]
